FAERS Safety Report 9797152 (Version 3)
Quarter: 2014Q1

REPORT INFORMATION
  Report Type: Report from Study
  Country: BR (occurrence: BR)
  Receive Date: 20140106
  Receipt Date: 20140113
  Transmission Date: 20141002
  Serious: No
  Sender: FDA-Public Use
  Company Number: PHHY2011BR87602

PATIENT
  Sex: Female

DRUGS (6)
  1. XOLAIR [Suspect]
     Indication: ASTHMA
     Dosage: 5 DF, DIVIDED IN APPLICATION EVERY 15 DAYS
  2. XOLAIR [Suspect]
     Dosage: 3.3 MG, EVERY 15 DAYS
     Dates: start: 20100101
  3. FORASEQ [Suspect]
     Indication: ASTHMA
     Dosage: 2 DF, QD
     Dates: start: 2012
  4. ALENIA [Concomitant]
     Dosage: UNK UKN, UNK
     Dates: start: 201210
  5. BECLOSOL [Concomitant]
     Dosage: UNK UKN, UNK
     Dates: start: 2010
  6. DUOVENT N [Concomitant]
     Dosage: UNK UKN, UNK
     Dates: start: 2010

REACTIONS (8)
  - Inflammation [Not Recovered/Not Resolved]
  - Dyspnoea [Not Recovered/Not Resolved]
  - Malaise [Not Recovered/Not Resolved]
  - Feeling hot [Unknown]
  - Pain in extremity [Unknown]
  - Injection site swelling [Not Recovered/Not Resolved]
  - Fatigue [Not Recovered/Not Resolved]
  - Weight increased [Not Recovered/Not Resolved]
